FAERS Safety Report 5241485-0 (Version None)
Quarter: 2007Q1

REPORT INFORMATION
  Report Type: 
  Country: None (occurrence: None)
  Receive Date: 20070220
  Receipt Date: 20070216
  Transmission Date: 20070707
  Serious: Yes (Congenital Anomaly)
  Sender: FDA-Public Use
  Company Number: US-GLAXOSMITHKLINE-A0639916A

PATIENT
  Sex: Female
  Weight: 2.8 kg

DRUGS (8)
  1. COMBIVIR [Suspect]
     Dosage: 2TAB PER DAY
     Dates: start: 20060403, end: 20060913
  2. ZIDOVUDINE [Suspect]
     Dates: start: 20060907, end: 20060907
  3. VIRACEPT [Concomitant]
     Dosage: 2500MG PER DAY
     Dates: start: 20060403, end: 20060913
  4. FOLATE [Concomitant]
  5. TRIMETHOPRIM + SULFAMETHOXAZOLE [Concomitant]
  6. MARIJUANA [Concomitant]
  7. ALBUTEROL [Concomitant]
  8. AUGMENTIN '125' [Concomitant]

REACTIONS (4)
  - BODY TEMPERATURE DECREASED [None]
  - BODY TEMPERATURE FLUCTUATION [None]
  - DRUG EXPOSURE DURING PREGNANCY [None]
  - POLYDACTYLY [None]
